FAERS Safety Report 8528094 (Version 4)
Quarter: 2013Q4

REPORT INFORMATION
  Report Type: Spontaneous
  Country: US (occurrence: US)
  Receive Date: 20120424
  Receipt Date: 20131031
  Transmission Date: 20140711
  Serious: Yes (Hospitalization, Disabling, Other)
  Sender: FDA-Public Use
  Company Number: US-009507513-1203USA04538

PATIENT
  Age: 5 Year
  Sex: Male
  Weight: 19.5 kg

DRUGS (2)
  1. SINGULAIR [Suspect]
     Indication: COUGH
     Dosage: 4 MG, QD
     Route: 048
     Dates: start: 20120301, end: 20120320
  2. SINGULAIR [Suspect]
     Indication: HYPERSENSITIVITY

REACTIONS (13)
  - Onychophagia [Recovering/Resolving]
  - Excessive eye blinking [Recovering/Resolving]
  - Tic [Recovering/Resolving]
  - Anxiety [Recovering/Resolving]
  - Rash [Recovering/Resolving]
  - Muscle spasms [Recovering/Resolving]
  - Balance disorder [Recovered/Resolved]
  - Convulsion [Recovered/Resolved]
  - Arthropod bite [Unknown]
  - Tourette^s disorder [Unknown]
  - Pyrexia [Unknown]
  - Cough [Unknown]
  - Dermatitis atopic [Unknown]
